FAERS Safety Report 13835671 (Version 1)
Quarter: 2017Q3

REPORT INFORMATION
  Report Type: Spontaneous
  Country: US (occurrence: US)
  Receive Date: 20170804
  Receipt Date: 20170804
  Transmission Date: 20171127
  Serious: Yes (Death)
  Sender: FDA-Public Use
  Company Number: US-ASTELLAS-2017US031123

PATIENT
  Age: 59 Year
  Sex: Male

DRUGS (1)
  1. PROGRAF [Suspect]
     Active Substance: TACROLIMUS\TACROLIMUS ANHYDROUS
     Indication: RENAL TRANSPLANT
     Dosage: 5 MG, ONCE DAILY (2MG EVERY MORNING AND 3MG EVERY EVENING)
     Route: 048
     Dates: start: 20170216, end: 20170722

REACTIONS (1)
  - Death [Fatal]

NARRATIVE: CASE EVENT DATE: 20170722
